FAERS Safety Report 21588044 (Version 2)
Quarter: 2022Q4

REPORT INFORMATION
  Report Type: Spontaneous
  Country: IT (occurrence: IT)
  Receive Date: 20221114
  Receipt Date: 20221117
  Transmission Date: 20230113
  Serious: Yes (Life-Threatening, Hospitalization, Other)
  Sender: FDA-Public Use
  Company Number: IT-MLMSERVICE-20221103-3892830-1

PATIENT
  Age: 2 Day
  Sex: Male

DRUGS (10)
  1. LEVETIRACETAM [Suspect]
     Active Substance: LEVETIRACETAM
     Indication: Seizure
     Dosage: 20 MG/KG (LOAD DOSE)
  2. LEVETIRACETAM [Suspect]
     Active Substance: LEVETIRACETAM
     Dosage: 60 MG/KG, 1X/DAY (MAINTENANCE DOSE)
  3. MIDAZOLAM [Suspect]
     Active Substance: MIDAZOLAM
     Indication: Seizure
     Dosage: 0.24 MG/KG (FREQ:1 H;PROGRESSIVELY REDUCED)
  4. MIDAZOLAM [Suspect]
     Active Substance: MIDAZOLAM
     Dosage: PROGRESSIVELY REDUCED
  5. MIDAZOLAM [Suspect]
     Active Substance: MIDAZOLAM
     Dosage: 0.24 MG/KG (FREQ:1 H)
  6. PHENOBARBITAL [Suspect]
     Active Substance: PHENOBARBITAL
     Indication: Seizure
     Dosage: 5 MG/KG, 1X/DAY (MAINTENANCE DOSE)
  7. PHENOBARBITAL [Suspect]
     Active Substance: PHENOBARBITAL
     Dosage: 20 MG/KG (LOAD DOSE)
  8. FENTANYL [Suspect]
     Active Substance: FENTANYL
     Indication: Hypoxic-ischaemic encephalopathy
     Dosage: 1 UG/KG FREQ:1 H
  9. FENTANYL [Suspect]
     Active Substance: FENTANYL
     Dosage: 3 UG/KG FREQ:1 H
  10. EPINEPHRINE [Concomitant]
     Active Substance: EPINEPHRINE
     Indication: Heart rate abnormal
     Dosage: UNK

REACTIONS (3)
  - Off label use [Unknown]
  - Coma neonatal [Recovered/Resolved]
  - Electroencephalogram abnormal [Recovered/Resolved]
